FAERS Safety Report 15766317 (Version 3)
Quarter: 2019Q2

REPORT INFORMATION
  Report Type: Spontaneous
  Country: FR (occurrence: FR)
  Receive Date: 20181227
  Receipt Date: 20190605
  Transmission Date: 20190711
  Serious: Yes (Death, Hospitalization)
  Sender: FDA-Public Use
  Company Number: FR-MYLANLABS-2018M1093549

PATIENT
  Age: 86 Year
  Sex: Female
  Weight: 82 kg

DRUGS (2)
  1. TARKA [Interacting]
     Active Substance: TRANDOLAPRIL\VERAPAMIL HYDROCHLORIDE
     Indication: HYPERTENSION
     Dosage: 1 DOSAGE FORM, QD
     Route: 048
     Dates: end: 20180825
  2. BISOPROLOL [Suspect]
     Active Substance: BISOPROLOL
     Indication: ATRIAL FIBRILLATION
     Dosage: 10 MILLIGRAM, QD
     Route: 048
     Dates: start: 20180824, end: 20180825

REACTIONS (2)
  - Cardiogenic shock [Fatal]
  - Drug interaction [Unknown]

NARRATIVE: CASE EVENT DATE: 20180825
